FAERS Safety Report 8563764-1 (Version None)
Quarter: 2012Q3

REPORT INFORMATION
  Report Type: 
  Country: None (occurrence: None)
  Receive Date: 20120803
  Receipt Date: 20120723
  Transmission Date: 20120928
  Serious: Yes (Hospitalization)
  Sender: FDA-Public Use
  Company Number: US-BRISTOL-MYERS SQUIBB COMPANY-16794927

PATIENT
  Age: 62 Year
  Sex: Female

DRUGS (2)
  1. PACLITAXEL [Suspect]
     Indication: OVARIAN CANCER
  2. CARBOPLATIN [Suspect]
     Indication: OVARIAN CANCER

REACTIONS (6)
  - RENAL INFARCT [None]
  - EMBOLIC CEREBRAL INFARCTION [None]
  - NEOPLASM MALIGNANT [None]
  - ENDOCARDITIS NONINFECTIVE [None]
  - PULMONARY EMBOLISM [None]
  - DEEP VEIN THROMBOSIS [None]
